FAERS Safety Report 4285423-6 (Version None)
Quarter: 2004Q1

REPORT INFORMATION
  Report Type: 
  Country: None (occurrence: None)
  Receive Date: 20040202
  Receipt Date: 20040202
  Transmission Date: 20041129
  Serious: Yes (Hospitalization)
  Sender: FDA-Public Use
  Company Number: None

PATIENT
  Sex: Female
  Weight: 117.4816 kg

DRUGS (1)
  1. GEMCITABINE [Suspect]

REACTIONS (2)
  - BODY TEMPERATURE INCREASED [None]
  - MEDICAL DEVICE DISCOMFORT [None]
